FAERS Safety Report 22235613 (Version 1)
Quarter: 2023Q2

REPORT INFORMATION
  Report Type: Spontaneous
  Country: US (occurrence: US)
  Receive Date: 20230420
  Receipt Date: 20230420
  Transmission Date: 20230722
  Serious: Yes (Other)
  Sender: FDA-Public Use
  Company Number: US-JNJFOC-20230432189

PATIENT
  Age: 55 Year
  Sex: Female

DRUGS (3)
  1. ELMIRON [Suspect]
     Active Substance: PENTOSAN POLYSULFATE SODIUM
     Indication: Cystitis interstitial
     Dosage: 300 MG PER DAY FOR 21 YEARS
     Route: 065
  2. HYDROXYZINE [Concomitant]
     Active Substance: HYDROXYZINE HYDROCHLORIDE
     Indication: Cystitis interstitial
  3. AMITRIPTYLINE [Concomitant]
     Active Substance: AMITRIPTYLINE
     Indication: Cystitis interstitial

REACTIONS (4)
  - Maculopathy [Unknown]
  - Detachment of retinal pigment epithelium [Unknown]
  - Choroidal neovascularisation [Unknown]
  - Retinal pigmentation [Unknown]
